FAERS Safety Report 22247054 (Version 1)
Quarter: 2023Q2

REPORT INFORMATION
  Report Type: Spontaneous
  Country: RO (occurrence: RO)
  Receive Date: 20230424
  Receipt Date: 20230424
  Transmission Date: 20230722
  Serious: Yes (Other)
  Sender: FDA-Public Use
  Company Number: RO-BRISTOL-MYERS SQUIBB COMPANY-2023-055386

PATIENT
  Age: 57 Year
  Sex: Male

DRUGS (2)
  1. NIVOLUMAB [Suspect]
     Active Substance: NIVOLUMAB
     Indication: Clear cell renal cell carcinoma
  2. IPILIMUMAB [Suspect]
     Active Substance: IPILIMUMAB
     Indication: Clear cell renal cell carcinoma

REACTIONS (6)
  - Tuberculosis [Unknown]
  - Immune-mediated adrenal insufficiency [Recovering/Resolving]
  - Immune-mediated cytopenia [Recovering/Resolving]
  - Immune-mediated nephritis [Recovering/Resolving]
  - Immune-mediated hepatitis [Recovering/Resolving]
  - Cutaneous vasculitis [Recovering/Resolving]
